FAERS Safety Report 12172687 (Version 4)
Quarter: 2021Q3

REPORT INFORMATION
  Report Type: Spontaneous
  Country: FR (occurrence: FR)
  Receive Date: 20160311
  Receipt Date: 20210916
  Transmission Date: 20211014
  Serious: Yes (Congenital Anomaly, Other)
  Sender: FDA-Public Use
  Company Number: FR-ABBVIE-16P-056-1579582-00

PATIENT
  Sex: Female

DRUGS (5)
  1. DIAZEPAM. [Suspect]
     Active Substance: DIAZEPAM
     Indication: MATERNAL EXPOSURE TIMING UNSPECIFIED
     Route: 064
  2. VALIUM [Concomitant]
     Active Substance: DIAZEPAM
     Indication: MATERNAL EXPOSURE TIMING UNSPECIFIED
  3. SABRIL [Concomitant]
     Active Substance: VIGABATRIN
     Indication: MATERNAL EXPOSURE TIMING UNSPECIFIED
  4. DEPAKINE CHRONO [Suspect]
     Active Substance: VALPROATE SODIUM
     Indication: MATERNAL EXPOSURE TIMING UNSPECIFIED
     Route: 064
  5. RIVOTRIL [Concomitant]
     Active Substance: CLONAZEPAM
     Indication: MATERNAL EXPOSURE TIMING UNSPECIFIED

REACTIONS (50)
  - Tympanic membrane perforation [Not Recovered/Not Resolved]
  - Congenital foot malformation [Unknown]
  - Strabismus congenital [Unknown]
  - Otitis media [Unknown]
  - Aphasia [Unknown]
  - Hepatomegaly [Unknown]
  - Intellectual disability [Not Recovered/Not Resolved]
  - Plagiocephaly [Not Recovered/Not Resolved]
  - Bronchitis [Not Recovered/Not Resolved]
  - Ear infection [Unknown]
  - Delayed puberty [Recovered/Resolved]
  - Uterine hypoplasia [Unknown]
  - Learning disability [Unknown]
  - Foetal exposure during pregnancy [Unknown]
  - Benign congenital hypotonia [Unknown]
  - Intellectual disability [Unknown]
  - Retinal anomaly congenital [Unknown]
  - Inability to crawl [Unknown]
  - Strabismus [Unknown]
  - Delayed puberty [Recovered/Resolved]
  - Astigmatism [Unknown]
  - Dysgraphia [Unknown]
  - Vision abnormal neonatal [Unknown]
  - Retinal anomaly congenital [Unknown]
  - Hypotonia [Not Recovered/Not Resolved]
  - Learning disorder [Unknown]
  - Muscle spasms [Unknown]
  - Renal atrophy [Unknown]
  - Ataxia [Unknown]
  - Cognitive disorder [Unknown]
  - Ischaemia [Unknown]
  - Escherichia infection [Unknown]
  - Congenital myopia [Unknown]
  - Sitting disability [Unknown]
  - Bone deformity [Unknown]
  - Cleft palate [Unknown]
  - Developmental delay [Not Recovered/Not Resolved]
  - Poor sucking reflex [Unknown]
  - Dysmorphism [Unknown]
  - Speech disorder [Not Recovered/Not Resolved]
  - Oculogyric crisis [Unknown]
  - Behaviour disorder [Not Recovered/Not Resolved]
  - Language disorder [Recovering/Resolving]
  - Psychomotor retardation [Not Recovered/Not Resolved]
  - Foot deformity [Not Recovered/Not Resolved]
  - Congenital hand malformation [Unknown]
  - Polydactyly [Unknown]
  - Encephalopathy [Unknown]
  - Mixed deafness [Unknown]
  - Talipes [Unknown]

NARRATIVE: CASE EVENT DATE: 1996
